FAERS Safety Report 11308761 (Version 1)
Quarter: 2015Q3

REPORT INFORMATION
  Report Type: Spontaneous
  Country: MY (occurrence: MY)
  Receive Date: 20150724
  Receipt Date: 20150724
  Transmission Date: 20151125
  Serious: Yes (Other)
  Sender: FDA-Public Use
  Company Number: MY-CIPLA LTD.-2015MY05907

PATIENT

DRUGS (9)
  1. ACTINOMYCIN D [Suspect]
     Active Substance: DACTINOMYCIN
     Indication: OVARIAN GERM CELL ENDODERMAL SINUS TUMOUR STAGE IV
     Dosage: 1.5 MG/M2, 3-WEEKLY
     Route: 065
  2. BLEOMYCIN [Suspect]
     Active Substance: BLEOMYCIN SULFATE
     Indication: OVARIAN GERM CELL ENDODERMAL SINUS TUMOUR STAGE IV
     Dosage: 15 U/M2 DAY 1, TOTAL 6 CYCLES, TOTAL 6 CYCLES
     Route: 042
  3. ETOSID [Suspect]
     Active Substance: ETOPOSIDE
     Indication: OVARIAN GERM CELL ENDODERMAL SINUS TUMOUR STAGE IV
     Dosage: 100 MG/M2, DAYS 1 TO 5, TOTAL 6 CYCLES
     Route: 042
  4. VINCRISTINE [Suspect]
     Active Substance: VINCRISTINE
     Indication: OVARIAN GERM CELL ENDODERMAL SINUS TUMOUR STAGE IV
     Dosage: 1.5 MG/M2, WEEKLYX10, THEN 3-WEEKLY
     Route: 065
  5. CARBOPLATIN. [Suspect]
     Active Substance: CARBOPLATIN
     Indication: OVARIAN GERM CELL ENDODERMAL SINUS TUMOUR STAGE IV
     Dosage: 600 MG/M2, DAY 1
     Route: 042
  6. ETOSID [Suspect]
     Active Substance: ETOPOSIDE
     Dosage: 120 MG/M2, DAYS 1 TO 3
     Route: 042
  7. BLEOMYCIN [Suspect]
     Active Substance: BLEOMYCIN SULFATE
     Dosage: 15 U/M2 DAY 2
     Route: 042
  8. CISPLATIN. [Suspect]
     Active Substance: CISPLATIN
     Indication: OVARIAN GERM CELL ENDODERMAL SINUS TUMOUR STAGE IV
     Dosage: 20 MG/M2, DAYS 1 TO 5
     Route: 042
  9. CYCLOPHOSPHAMIDE. [Suspect]
     Active Substance: CYCLOPHOSPHAMIDE
     Indication: OVARIAN GERM CELL ENDODERMAL SINUS TUMOUR STAGE IV
     Dosage: 600 MG/M2, 3-WEEKLY
     Route: 065

REACTIONS (5)
  - Recurrent cancer [Recovered/Resolved]
  - Cystitis radiation [Unknown]
  - Bladder dysfunction [Unknown]
  - Treatment failure [Unknown]
  - Ureteric stenosis [Unknown]
